FAERS Safety Report 11096403 (Version 1)
Quarter: 2015Q2

REPORT INFORMATION
  Report Type: Spontaneous
  Country: US (occurrence: US)
  Receive Date: 20150507
  Receipt Date: 20150507
  Transmission Date: 20150821
  Serious: Yes (Life-Threatening, Hospitalization)
  Sender: FDA-Public Use
  Company Number: US-ENDO PHARMACEUTICALS INC.-TRIP20140021

PATIENT
  Age: 23 Year
  Sex: Female

DRUGS (2)
  1. TRI-PREVIFEM TABLETS [Suspect]
     Active Substance: ETHINYL ESTRADIOL\NORGESTIMATE
     Indication: ORAL CONTRACEPTION
     Route: 048
     Dates: start: 201406, end: 2014
  2. TRI-PREVIFEM TABLETS [Suspect]
     Active Substance: ETHINYL ESTRADIOL\NORGESTIMATE
     Indication: CONTRACEPTION

REACTIONS (1)
  - Pulmonary embolism [Recovering/Resolving]

NARRATIVE: CASE EVENT DATE: 20141209
